FAERS Safety Report 12567007 (Version 1)
Quarter: 2016Q3

REPORT INFORMATION
  Report Type: Other
  Country: GB (occurrence: GB)
  Receive Date: 20160718
  Receipt Date: 20160718
  Transmission Date: 20161109
  Serious: Yes (Other)
  Sender: FDA-Public Use
  Company Number: GB-TAKEDA-2016TJP015009

PATIENT
  Age: 44 Year
  Sex: Female
  Weight: 53.97 kg

DRUGS (5)
  1. TECFIDERA [Concomitant]
     Active Substance: DIMETHYL FUMARATE
     Dosage: UNK
  2. LANSOPRAZOLE. [Suspect]
     Active Substance: LANSOPRAZOLE
     Indication: DYSPEPSIA
     Dosage: 30 MG, UNK
     Route: 048
     Dates: start: 20130101, end: 20160612
  3. FEXOFENADINE [Concomitant]
     Active Substance: FEXOFENADINE\FEXOFENADINE HYDROCHLORIDE
     Dosage: UNK
  4. NALOXONE W/OXYCODONE [Concomitant]
     Active Substance: NALOXONE HYDROCHLORIDE\OXYCODONE HYDROCHLORIDE
     Dosage: UNK
  5. METFORMIN [Concomitant]
     Active Substance: METFORMIN HYDROCHLORIDE
     Dosage: 1000 MG, SLOW REALEASE

REACTIONS (10)
  - Rash [Recovering/Resolving]
  - Drug intolerance [Recovering/Resolving]
  - Food allergy [Recovered/Resolved with Sequelae]
  - Hypoglycaemia [Recovering/Resolving]
  - Dyspepsia [Recovering/Resolving]
  - Urticaria [Recovering/Resolving]
  - Irritable bowel syndrome [Recovering/Resolving]
  - Loss of consciousness [Recovering/Resolving]
  - Reaction to preservatives [Recovered/Resolved with Sequelae]
  - Lactose intolerance [Recovered/Resolved with Sequelae]

NARRATIVE: CASE EVENT DATE: 20160506
